FAERS Safety Report 14764202 (Version 1)
Quarter: 2018Q2

REPORT INFORMATION
  Report Type: Report from Study
  Country: CH (occurrence: CH)
  Receive Date: 20180416
  Receipt Date: 20180416
  Transmission Date: 20180711
  Serious: Yes (Hospitalization)
  Sender: FDA-Public Use
  Company Number: CH-PFIZER INC-2018148815

PATIENT
  Age: 43 Year
  Sex: Male
  Weight: 90 kg

DRUGS (1)
  1. GEMTUZUMAB OZOGAMICIN [Suspect]
     Active Substance: GEMTUZUMAB OZOGAMICIN
     Indication: ACUTE MYELOID LEUKAEMIA
     Dosage: 5 MG, THREE TIMES (1 VIAL ON D1, D4 AND D7)
     Route: 042
     Dates: start: 20180403, end: 20180409

REACTIONS (6)
  - Blood bilirubin increased [Unknown]
  - Venoocclusive disease [Unknown]
  - Alanine aminotransferase increased [Unknown]
  - Gallbladder enlargement [Unknown]
  - Aspartate aminotransferase increased [Unknown]
  - Hepatic pain [Unknown]

NARRATIVE: CASE EVENT DATE: 20180409
